FAERS Safety Report 6116747-5 (Version None)
Quarter: 2009Q1

REPORT INFORMATION
  Report Type: 
  Country: None (occurrence: None)
  Receive Date: 20090314
  Receipt Date: 20081223
  Transmission Date: 20090719
  Serious: Yes (Other)
  Sender: FDA-Public Use
  Company Number: US-ABBOTT-08P-163-0494487-00

PATIENT
  Sex: Female
  Weight: 68.1 kg

DRUGS (4)
  1. HUMIRA [Suspect]
     Indication: CROHN'S DISEASE
     Dates: start: 20070401, end: 20081101
  2. HUMIRA [Suspect]
     Dates: start: 20081101
  3. WELLBUTRIN [Concomitant]
     Indication: DEPRESSION
  4. ZOLOFT [Concomitant]
     Indication: DEPRESSION

REACTIONS (3)
  - DRUG INEFFECTIVE [None]
  - HEPATIC ENZYME INCREASED [None]
  - INTESTINAL OBSTRUCTION [None]
